FAERS Safety Report 10133886 (Version 5)
Quarter: 2014Q3

REPORT INFORMATION
  Report Type: Spontaneous
  Country: DK (occurrence: DK)
  Receive Date: 20140428
  Receipt Date: 20140819
  Transmission Date: 20150326
  Serious: Yes (Death, Other)
  Sender: FDA-Public Use
  Company Number: DK-PFIZER INC-2014114369

PATIENT
  Age: 66 Year
  Sex: Female
  Weight: 50 kg

DRUGS (26)
  1. DEPAKINE [Suspect]
     Active Substance: VALPROATE SODIUM
     Indication: STATUS EPILEPTICUS
     Dosage: 1800 MG
     Route: 042
     Dates: start: 20140224, end: 20140224
  2. DEPAKINE [Suspect]
     Active Substance: VALPROATE SODIUM
     Dosage: 2000 MG
     Route: 042
     Dates: start: 20140225, end: 20140225
  3. DEPAKINE [Suspect]
     Active Substance: VALPROATE SODIUM
     Dosage: 600 MG, 2X/DAY (MAINTENANCE DOSE)
     Route: 042
     Dates: start: 20140226
  4. KEPPRA [Suspect]
     Active Substance: LEVETIRACETAM
     Dosage: MAINTENANCE DOSE 500 MG X 2 DAILY, PARTLY
     Route: 042
     Dates: start: 20140227
  5. PINEX [Concomitant]
     Active Substance: ACETAMINOPHEN
     Indication: BODY TEMPERATURE INCREASED
     Dosage: UNK
     Dates: start: 20140226
  6. FOSPHENYTOIN SODIUM. [Suspect]
     Active Substance: FOSPHENYTOIN SODIUM
     Indication: STATUS EPILEPTICUS
     Dosage: 750 MG (LOADING DOSE)
     Route: 042
     Dates: start: 20140224, end: 20140224
  7. PHENYTOIN. [Concomitant]
     Active Substance: PHENYTOIN
     Dosage: 50 MG X2 WAS REDUCED
     Route: 042
     Dates: start: 20140224, end: 20140224
  8. PERFALGAN [Concomitant]
     Active Substance: ACETAMINOPHEN
     Dosage: 1 G I.V. MAXIMUM X 4 WITH 4 HOURS BETWEEN ADMINISTERED AS INFUSION OVER 15 MIN
     Route: 042
     Dates: start: 20140225
  9. KEPPRA [Suspect]
     Active Substance: LEVETIRACETAM
     Dosage: 500 MG X 2 FROM NIGHT
     Route: 042
     Dates: start: 20140226
  10. VIMPAT [Suspect]
     Active Substance: LACOSAMIDE
     Dosage: 150 MG, 2X/DAY (MAINTENANCE DOSE)
     Route: 042
     Dates: start: 20140227, end: 20140227
  11. METRONIDAZOLE. [Concomitant]
     Active Substance: METRONIDAZOLE
     Dosage: 50 MG X3
     Route: 042
     Dates: start: 20140224, end: 201402
  12. PANTOLOC [Concomitant]
     Active Substance: PANTOPRAZOLE SODIUM
     Indication: HAEMATEMESIS
     Dosage: 20 MG, UNK
  13. POTASSIUM CHLORIDE W/SODIUM CHLORIDE [Concomitant]
     Active Substance: POTASSIUM CHLORIDE\SODIUM CHLORIDE
     Dosage: UNK
     Dates: end: 20140224
  14. BERODUAL [Concomitant]
     Active Substance: FENOTEROL HYDROBROMIDE\IPRATROPIUM BROMIDE
     Dosage: UNK
     Dates: start: 20140226
  15. STESOLID MR [Concomitant]
     Dosage: 10 MG, UNK
     Dates: start: 20140224
  16. FOSPHENYTOIN SODIUM. [Suspect]
     Active Substance: FOSPHENYTOIN SODIUM
     Dosage: 100 MG, 2X/DAY
     Route: 042
     Dates: start: 20140225
  17. VIMPAT [Suspect]
     Active Substance: LACOSAMIDE
     Indication: STATUS EPILEPTICUS
     Dosage: 400 MG, UNK
     Route: 042
     Dates: start: 20140227
  18. CALCIUM CHLORIDE. [Concomitant]
     Active Substance: CALCIUM CHLORIDE
     Dosage: 5 MMOL, UNK
     Route: 042
     Dates: start: 20140224
  19. PHENYTOIN. [Concomitant]
     Active Substance: PHENYTOIN
     Dosage: 100 MG, 2X/DAY
     Route: 042
     Dates: start: 20140226, end: 20140226
  20. PHENYTOIN. [Concomitant]
     Active Substance: PHENYTOIN
     Dosage: MAINTENANCE DOSE 100 MG, 2X/DAY, PARTLY
     Dates: start: 20140227
  21. TAZOCIN [Concomitant]
     Active Substance: PIPERACILLIN SODIUM\TAZOBACTAM SODIUM
     Indication: RENAL IMPAIRMENT
     Dosage: 4 G X 2
     Dates: start: 20140224, end: 201402
  22. IKTORIVIL [Concomitant]
     Active Substance: CLONAZEPAM
     Indication: CONVULSION
     Dosage: UNK
  23. PHENYTOIN. [Concomitant]
     Active Substance: PHENYTOIN
     Dosage: MAINTENANCE DOSE OF 50 MG X 2
     Route: 042
     Dates: start: 20140225, end: 20140225
  24. FOSPHENYTOIN SODIUM. [Suspect]
     Active Substance: FOSPHENYTOIN SODIUM
     Dosage: 50 MG, 2X/DAY
     Route: 042
     Dates: start: 20140225, end: 20140225
  25. KEPPRA [Suspect]
     Active Substance: LEVETIRACETAM
     Indication: STATUS EPILEPTICUS
     Dosage: 1500 MG X 1 (LOADING DOSE)
     Route: 042
     Dates: start: 20140226, end: 20140226
  26. ORFIRIL [Concomitant]
     Active Substance: VALPROIC ACID
     Dosage: MAINTENANCE DOSE UNK, PARTLY
     Dates: start: 20140227

REACTIONS (6)
  - Unresponsive to stimuli [Unknown]
  - Haematemesis [Unknown]
  - Blood pressure decreased [Recovered/Resolved]
  - Heart rate decreased [Recovered/Resolved]
  - Dyskinesia [Unknown]
  - Sudden death [Fatal]

NARRATIVE: CASE EVENT DATE: 20140224
